FAERS Safety Report 5926053-7 (Version None)
Quarter: 2008Q4

REPORT INFORMATION
  Report Type: 
  Country: None (occurrence: None)
  Receive Date: 20081021
  Receipt Date: 20081013
  Transmission Date: 20090506
  Serious: Yes (Hospitalization)
  Sender: FDA-Public Use
  Company Number: US-AMGEN-QUU313278

PATIENT
  Sex: Female

DRUGS (2)
  1. ENBREL [Suspect]
     Indication: RHEUMATOID ARTHRITIS
     Route: 058
     Dates: start: 20030911
  2. METHOTREXATE [Concomitant]
     Dates: start: 20030911

REACTIONS (8)
  - ARTHRALGIA [None]
  - DYSPHONIA [None]
  - FATIGUE [None]
  - HEAT STROKE [None]
  - INFECTION [None]
  - JOINT SWELLING [None]
  - OROPHARYNGEAL PAIN [None]
  - PAIN [None]
